FAERS Safety Report 7623380-2 (Version None)
Quarter: 2011Q3

REPORT INFORMATION
  Report Type: 
  Country: None (occurrence: None)
  Receive Date: 20110720
  Receipt Date: 20110712
  Transmission Date: 20111222
  Serious: Yes (Death)
  Sender: FDA-Public Use
  Company Number: AU-JNJFOC-20110705402

PATIENT
  Age: 84 Year
  Sex: Female
  Weight: 58 kg

DRUGS (3)
  1. OXYBUTYNIN [Suspect]
     Indication: STRESS URINARY INCONTINENCE
     Route: 065
  2. CODEINE SULFATE [Concomitant]
     Indication: PRODUCT USED FOR UNKNOWN INDICATION
     Route: 065
  3. MORPHINE [Concomitant]
     Indication: PRODUCT USED FOR UNKNOWN INDICATION
     Route: 065

REACTIONS (1)
  - HYPERTHERMIA [None]
